FAERS Safety Report 8839628 (Version 1)
Quarter: 2012Q4

REPORT INFORMATION
  Report Type: 
  Country: BE (occurrence: BE)
  Receive Date: 20121015
  Receipt Date: 20121015
  Transmission Date: 20130627
  Serious: Yes (Hospitalization)
  Sender: FDA-Public Use
  Company Number: BE-SANOFI-AVENTIS-2012SA073436

PATIENT
  Age: 40 Year
  Sex: Female
  Weight: 77.6 kg

DRUGS (15)
  1. TAXOTERE [Suspect]
     Indication: BREAST CANCER
     Dosage: dose-100 mg/m2
     Route: 065
     Dates: start: 20110614, end: 20110614
  2. TAXOTERE [Suspect]
     Indication: BREAST CANCER
     Dosage: dose-100 mg/m2
     Route: 065
     Dates: start: 20110704, end: 20110704
  3. TAXOTERE [Suspect]
     Indication: BREAST CANCER
     Dosage: dose-100 mg/m2
     Route: 065
     Dates: start: 20110725, end: 20110725
  4. TAXOTERE [Suspect]
     Indication: BREAST CANCER
     Dosage: dose-100 mg/m2
     Route: 065
     Dates: start: 20110816, end: 20110816
  5. ISO-BETADINE [Concomitant]
     Indication: THERAPEUTIC GARGLE
     Dates: start: 20110619
  6. CALCIUM PHOSPHATE [Concomitant]
     Indication: THERAPEUTIC GARGLE
     Dates: start: 20110624, end: 20110901
  7. AMUKIN [Concomitant]
     Route: 042
     Dates: start: 20110619
  8. DIPHENHYDRAMINE/LIDOCAINE [Concomitant]
     Indication: THERAPEUTIC GARGLE
     Dates: start: 20110406, end: 20110901
  9. TAZOCIN [Concomitant]
     Dosage: Strength: 4 g (piperacillin sodium 4000.00 mg; tazobactam sodium 500.00 mg)
     Route: 042
     Dates: start: 20010619
  10. ACICLOVIR [Concomitant]
     Route: 042
     Dates: start: 20110619
  11. GLUCOSE/POTASSIUM CHLORIDE [Concomitant]
     Dosage: 1L glucose 5% + KCL 20meq every 12 hours (glucose (anhydrous) potassium chloride)
     Dates: start: 20110619
  12. POTASSIUM CHLORIDE/SODIUM CHLORIDE [Concomitant]
     Dosage: 1L NaCl 0.9% + 20 meq KCl every 12 hours
     Dates: start: 20110619
  13. PARACETAMOL [Concomitant]
     Route: 042
     Dates: start: 20110619
  14. DIFLUCAN [Concomitant]
     Dosage: strength: 200 mg
     Route: 042
     Dates: start: 20110619
  15. DIFLUCAN [Concomitant]
     Dosage: strength: 1400 5cc
     Dates: start: 201104

REACTIONS (30)
  - Hypokalaemia [Unknown]
  - Feeling abnormal [Unknown]
  - Sensation of heaviness [Unknown]
  - Hypoglycaemia [Unknown]
  - Hypothyroidism [Unknown]
  - Dysstasia [Unknown]
  - Hypomagnesaemia [Unknown]
  - Onychalgia [Unknown]
  - Dizziness [Unknown]
  - Presyncope [Unknown]
  - Herpes virus infection [Unknown]
  - Tooth abscess [Unknown]
  - Toothache [Unknown]
  - Infection [Unknown]
  - Anaemia [Unknown]
  - Fatigue [Unknown]
  - Asthenia [Unknown]
  - Alopecia [Not Recovered/Not Resolved]
  - Thrombocytopenia [Unknown]
  - Urinary tract infection [Unknown]
  - Dehydration [Unknown]
  - Diarrhoea [Unknown]
  - Decreased appetite [Unknown]
  - Myalgia [Unknown]
  - Mucosal inflammation [Unknown]
  - Ulcer [Unknown]
  - Dyspnoea [Unknown]
  - Febrile neutropenia [Unknown]
  - Nausea [Unknown]
  - Insomnia [Unknown]
